FAERS Safety Report 8011143-8 (Version None)
Quarter: 2011Q4

REPORT INFORMATION
  Report Type: 
  Country: None (occurrence: None)
  Receive Date: 20111228
  Receipt Date: 20111216
  Transmission Date: 20120403
  Serious: Yes (Other)
  Sender: FDA-Public Use
  Company Number: PHHY2011CA109501

PATIENT
  Sex: Female

DRUGS (7)
  1. FLOVENT [Concomitant]
  2. FOLIC ACID [Concomitant]
  3. MULTI-VITAMINS [Concomitant]
  4. EXELON [Suspect]
     Dosage: 10 MG, UNK
     Route: 062
  5. ZANTAC [Concomitant]
     Dosage: 300 MG, UNK
  6. EXELON [Suspect]
     Indication: DEMENTIA
     Dosage: 5 MG, UNK
     Route: 062
     Dates: start: 20110412
  7. DIATABS [Concomitant]

REACTIONS (5)
  - EYE PAIN [None]
  - INTRAOCULAR PRESSURE TEST ABNORMAL [None]
  - PRURITUS [None]
  - EYELID OEDEMA [None]
  - MINI MENTAL STATUS EXAMINATION ABNORMAL [None]
